FAERS Safety Report 5238310-0 (Version None)
Quarter: 2007Q1

REPORT INFORMATION
  Report Type: 
  Country: None (occurrence: None)
  Receive Date: 20070215
  Receipt Date: 20070203
  Transmission Date: 20070707
  Serious: Yes (Other)
  Sender: FDA-Public Use
  Company Number: PHMT2007CA00514

PATIENT
  Age: 33 Year
  Sex: Female
  Weight: 57.142 kg

DRUGS (2)
  1. ESTRADOT [Suspect]
     Indication: OVULATION INDUCTION
     Dosage: 100 UG PATCH EVERY THREE DAYS
     Route: 062
     Dates: start: 20061202
  2. PROMETRIUM [Concomitant]
     Route: 067

REACTIONS (4)
  - APPLICATION SITE ERYTHEMA [None]
  - PRURITUS [None]
  - SKIN DISCOLOURATION [None]
  - URTICARIA [None]
